FAERS Safety Report 20467044 (Version 2)
Quarter: 2022Q1

REPORT INFORMATION
  Report Type: Report from Study
  Country: US (occurrence: None)
  Receive Date: 20220214
  Receipt Date: 20220328
  Transmission Date: 20220423
  Serious: Yes (Death)
  Sender: FDA-Public Use
  Company Number: US-Merck Healthcare KGaA-9299248

PATIENT
  Age: 76 Year
  Sex: Female

DRUGS (1)
  1. REBIF [Suspect]
     Active Substance: INTERFERON BETA-1A
     Indication: Product used for unknown indication
     Dosage: REBIF PREFILLED SYRINGE
     Route: 058
     Dates: start: 20180223

REACTIONS (1)
  - Death [Fatal]

NARRATIVE: CASE EVENT DATE: 20220131
